FAERS Safety Report 14457576 (Version 2)
Quarter: 2018Q1

REPORT INFORMATION
  Report Type: Spontaneous
  Country: US (occurrence: US)
  Receive Date: 20180130
  Receipt Date: 20180313
  Transmission Date: 20180509
  Serious: No
  Sender: FDA-Public Use
  Company Number: US-PFIZER INC-2018038785

PATIENT
  Age: 52 Year
  Sex: Female

DRUGS (15)
  1. DESMOPRESSIN [Concomitant]
     Active Substance: DESMOPRESSIN
     Dosage: 0.1 MG, 2X/DAY
     Route: 048
     Dates: start: 20180110
  2. HYDROCORTISONE. [Concomitant]
     Active Substance: HYDROCORTISONE
     Dosage: 10 MG, 2X/DAY (TAKE 1 TABLET (10 MWITH FOOD)
     Route: 048
     Dates: start: 20180110
  3. METFORMIN [Concomitant]
     Active Substance: METFORMIN HYDROCHLORIDE
     Dosage: 1000 MG, 2X/DAY (TAKE 1 TABLET 2 TIMES PER DAY WITH MORNING AND EVENING MEALS)
     Route: 048
  4. NORDITROPIN [Concomitant]
     Active Substance: SOMATROPIN
     Dosage: 0.2 MG, 1X/DAY
     Route: 058
  5. NYSTATIN. [Concomitant]
     Active Substance: NYSTATIN
     Dosage: UNK, 3X/DAY
     Route: 061
  6. AMITRIPTYLINE [Concomitant]
     Active Substance: AMITRIPTYLINE
     Dosage: 50 MG, AS NEEDED (3 TIMES PER DAY )
     Route: 048
  7. NICOTINE. [Concomitant]
     Active Substance: NICOTINE
     Dosage: 21 MG, 1X/DAY (APPLY1 PATCH)
     Route: 062
  8. LEVOTHYROXINE SODIUM. [Suspect]
     Active Substance: LEVOTHYROXINE SODIUM
     Indication: HYPOTHYROIDISM
     Dosage: 75 UG, DAILY
     Route: 048
     Dates: start: 20170630
  9. JANUVIA [Concomitant]
     Active Substance: SITAGLIPTIN PHOSPHATE
     Dosage: 100 MG, 1X/DAY (TAKE1 TABLET )
     Route: 048
  10. FLUTICASONE. [Concomitant]
     Active Substance: FLUTICASONE
     Dosage: 100 UG, 1X/DAY  (1 SPRAY (50 MCG) IN EACH NOSTRIL )
     Route: 045
  11. PLAQUENIL [Concomitant]
     Active Substance: HYDROXYCHLOROQUINE SULFATE
     Dosage: 200 MG, 2X/DAY (TAKE 1 TABLET)
     Route: 048
  12. ATIVAN [Concomitant]
     Active Substance: LORAZEPAM
     Dosage: 0.5 MG, AS NEEDED (2 TIMES PER DAY)
     Route: 048
  13. CLONAZEPAM. [Concomitant]
     Active Substance: CLONAZEPAM
     Dosage: 0.5 MG, 1X/DAY
     Route: 048
  14. GLIPIZIDE. [Concomitant]
     Active Substance: GLIPIZIDE
     Dosage: 10 MG, 1X/DAY (TAKE 1 TABLET (10 MG )
     Route: 048
  15. LISINOPRIL. [Concomitant]
     Active Substance: LISINOPRIL
     Dosage: 20 MG, 1X/DAY (TAKE 1 TABLET )
     Route: 048
     Dates: start: 20180110

REACTIONS (3)
  - Intentional product misuse [Unknown]
  - Transaminases increased [Recovered/Resolved]
  - Feeling abnormal [Unknown]

NARRATIVE: CASE EVENT DATE: 201708
